FAERS Safety Report 20071067 (Version 9)
Quarter: 2022Q2

REPORT INFORMATION
  Report Type: Report from Study
  Country: CO (occurrence: CO)
  Receive Date: 20211115
  Receipt Date: 20220611
  Transmission Date: 20220721
  Serious: Yes (Death, Life-Threatening, Hospitalization, Other)
  Sender: FDA-Public Use
  Company Number: CO-NOVARTISPH-NVSC2021CO185713

PATIENT
  Age: 69 Year
  Sex: Female

DRUGS (3)
  1. VOTRIENT [Suspect]
     Active Substance: PAZOPANIB HYDROCHLORIDE
     Indication: Soft tissue sarcoma
     Dosage: 800 MG, QD
     Route: 048
  2. VOTRIENT [Suspect]
     Active Substance: PAZOPANIB HYDROCHLORIDE
     Indication: Metastatic renal cell carcinoma
     Dosage: 400 MG, QD (1 OF 400 MG)
     Route: 048
  3. VOTRIENT [Suspect]
     Active Substance: PAZOPANIB HYDROCHLORIDE
     Dosage: UNK, QD
     Route: 048

REACTIONS (26)
  - Death [Fatal]
  - General physical health deterioration [Unknown]
  - Haemorrhage [Unknown]
  - Diabetes mellitus [Unknown]
  - Multiple organ dysfunction syndrome [Unknown]
  - Neoplasm [Unknown]
  - Choking [Unknown]
  - Cardiac dysfunction [Unknown]
  - Discouragement [Unknown]
  - Pulmonary function test decreased [Unknown]
  - Second primary malignancy [Unknown]
  - Lung neoplasm malignant [Unknown]
  - Fatigue [Unknown]
  - Platelet count decreased [Unknown]
  - Pleural effusion [Unknown]
  - Drug intolerance [Unknown]
  - Choking sensation [Unknown]
  - Pain [Unknown]
  - Decreased appetite [Unknown]
  - Chest discomfort [Unknown]
  - Wound [Unknown]
  - Movement disorder [Recovered/Resolved]
  - Hypertension [Unknown]
  - Alopecia [Unknown]
  - Wound infection [Unknown]
  - Inappropriate schedule of product administration [Unknown]

NARRATIVE: CASE EVENT DATE: 20220530
